FAERS Safety Report 4532785-8 (Version None)
Quarter: 2004Q4

REPORT INFORMATION
  Report Type: 
  Country: None (occurrence: None)
  Receive Date: 20041206
  Receipt Date: 20040930
  Transmission Date: 20050328
  Serious: No
  Sender: FDA-Public Use
  Company Number: USA040979739

PATIENT
  Age: 50 Year
  Sex: Female
  Weight: 67 kg

DRUGS (5)
  1. CYMBALTA [Suspect]
     Indication: DEPRESSION
     Dosage: 30 MG DAY
     Dates: start: 20040926
  2. NEURONTIN (GABAPENTIN PFIZER) [Concomitant]
  3. ACETAMINOPHEN [Concomitant]
  4. MULTI-VITAMINS [Concomitant]
  5. LIDODERM (LIDOCAINE) [Concomitant]

REACTIONS (3)
  - MIDDLE INSOMNIA [None]
  - NAUSEA [None]
  - SOMNOLENCE [None]
